FAERS Safety Report 20654284 (Version 1)
Quarter: 2022Q1

REPORT INFORMATION
  Report Type: Spontaneous
  Country: None (occurrence: US)
  Receive Date: 20220330
  Receipt Date: 20220330
  Transmission Date: 20220423
  Serious: No
  Sender: FDA-Public Use
  Company Number: US-P+L Developments of Newyork Corporation-2127238

PATIENT
  Sex: Female

DRUGS (1)
  1. MINOXIDIL [Suspect]
     Active Substance: MINOXIDIL
     Indication: Hair growth abnormal
     Route: 062
     Dates: start: 202110

REACTIONS (4)
  - Pruritus [Unknown]
  - Dandruff [Unknown]
  - Alopecia [Unknown]
  - Rash [Unknown]
